FAERS Safety Report 4471580-5 (Version None)
Quarter: 2004Q4

REPORT INFORMATION
  Report Type: 
  Country: None (occurrence: None)
  Receive Date: 20041012
  Receipt Date: 20040616
  Transmission Date: 20050328
  Serious: Yes (Hospitalization)
  Sender: FDA-Public Use
  Company Number: JP-GLAXOSMITHKLINE-B0336801A

PATIENT
  Age: 64 Year
  Sex: Male
  Weight: 68 kg

DRUGS (8)
  1. VALTREX [Suspect]
     Indication: HERPES ZOSTER
     Dosage: 1000MG THREE TIMES PER DAY
     Route: 048
     Dates: start: 20040610, end: 20040614
  2. AZULENE SODIUM SULPHONATE + GLUTAMINE [Suspect]
     Indication: GASTRITIS
     Dosage: .5G THREE TIMES PER DAY
     Route: 048
     Dates: start: 20040610, end: 20040615
  3. NAIXAN [Suspect]
     Indication: HERPES ZOSTER
     Dosage: 100MG THREE TIMES PER DAY
     Route: 048
     Dates: start: 20040610, end: 20040615
  4. CYANOCOBALAMIN [Suspect]
     Indication: HERPES ZOSTER
     Dosage: 500MCG THREE TIMES PER DAY
     Route: 048
     Dates: start: 20040610, end: 20040615
  5. IMUNACE [Suspect]
     Dosage: 700IU3 PER DAY
     Route: 042
     Dates: start: 20040610, end: 20040621
  6. ADALAT [Concomitant]
     Route: 048
  7. ALLOZYM [Concomitant]
     Route: 048
  8. COVERSYL [Concomitant]
     Route: 048

REACTIONS (3)
  - EOSINOPHIL COUNT INCREASED [None]
  - NEUTROPHIL COUNT DECREASED [None]
  - WHITE BLOOD CELL COUNT DECREASED [None]
